FAERS Safety Report 10183314 (Version 2)
Quarter: 2014Q2

REPORT INFORMATION
  Report Type: Spontaneous
  Country: US (occurrence: US)
  Receive Date: 20140520
  Receipt Date: 20140520
  Transmission Date: 20141212
  Serious: No
  Sender: FDA-Public Use
  Company Number: US-PFIZER INC-2014109609

PATIENT
  Age: 67 Year
  Sex: Male

DRUGS (7)
  1. INLYTA [Suspect]
     Indication: RENAL CANCER
     Dosage: UNK
     Dates: start: 20140121
  2. LEVOTHYROXINE SODIUM [Concomitant]
     Dosage: UNK
  3. OXYCODONE HYDROCHLORIDE [Concomitant]
     Dosage: UNK
  4. TAMSULOSIN HYDROCHLORIDE [Concomitant]
     Dosage: UNK
  5. CARVEDILOL [Concomitant]
     Dosage: UNK
  6. INDOMETHACIN [Concomitant]
     Dosage: UNK
  7. FINASTERIDE [Concomitant]
     Dosage: UNK

REACTIONS (2)
  - Disease progression [Unknown]
  - Renal cancer [Unknown]
